FAERS Safety Report 23371332 (Version 2)
Quarter: 2024Q1

REPORT INFORMATION
  Report Type: Report from Study
  Country: CN (occurrence: CN)
  Receive Date: 20240105
  Receipt Date: 20240117
  Transmission Date: 20240410
  Serious: No
  Sender: FDA-Public Use
  Company Number: CN-PFIZER INC-PV202400000012

PATIENT
  Age: 47 Year
  Sex: Male
  Weight: 82 kg

DRUGS (14)
  1. NIRMATRELVIR\RITONAVIR [Suspect]
     Active Substance: NIRMATRELVIR\RITONAVIR
     Indication: COVID-19 treatment
     Dosage: [NIRMATRELVIR 300 MG]/[RITONAVIR 100 MG], 2X/DAY
     Dates: start: 20220526, end: 20220530
  2. NIRMATRELVIR\RITONAVIR [Suspect]
     Active Substance: NIRMATRELVIR\RITONAVIR
     Dosage: [NIRMATRELVIR 300 MG]/[RITONAVIR 100 MG], 2X/DAY
     Dates: start: 20220531, end: 20220604
  3. NIRMATRELVIR\RITONAVIR [Suspect]
     Active Substance: NIRMATRELVIR\RITONAVIR
     Dosage: [NIRMATRELVIR 300 MG]/[RITONAVIR 100 MG], 2X/DAY
     Dates: start: 20220605
  4. THYMALFASIN [Concomitant]
     Active Substance: THYMALFASIN
     Indication: Prophylaxis
     Dosage: UNK
     Route: 058
     Dates: start: 20220524, end: 20220528
  5. METFORMIN [Concomitant]
     Active Substance: METFORMIN HYDROCHLORIDE
     Indication: Diabetes mellitus
     Dosage: UNK
     Route: 048
     Dates: start: 20220524, end: 20220606
  6. DAPAGLIFLOZIN [Concomitant]
     Active Substance: DAPAGLIFLOZIN
     Indication: Diabetes mellitus
     Dosage: UNK
     Route: 048
     Dates: start: 20220524, end: 20220606
  7. LEVAMLODIPINE MALEATE [Concomitant]
     Active Substance: LEVAMLODIPINE MALEATE
     Indication: Blood pressure management
     Dosage: UNK
     Route: 048
     Dates: start: 20220524, end: 20220606
  8. INTERFERON ALFA-2B [Concomitant]
     Active Substance: INTERFERON ALFA-2B
     Indication: Immune enhancement therapy
     Dosage: HUMAN, SPRAY (JIEFU)
     Route: 045
     Dates: start: 20220524, end: 20220606
  9. ASPIRIN [Concomitant]
     Active Substance: ASPIRIN
     Indication: Anticoagulant therapy
     Dosage: UNK
     Route: 048
     Dates: start: 20220524, end: 20220606
  10. SHUVASTIN [Concomitant]
     Indication: Lipids decreased
     Dosage: UNK
     Route: 048
     Dates: start: 20220524, end: 20220606
  11. TYLENOL [Concomitant]
     Active Substance: ACETAMINOPHEN
     Indication: Pyrexia
     Dosage: UNK
     Route: 048
     Dates: start: 20220524, end: 20220606
  12. PLENDIL [Concomitant]
     Active Substance: FELODIPINE
     Indication: Blood pressure management
     Dosage: UNK
     Route: 048
     Dates: start: 20220528, end: 20220528
  13. METHOXYPHENAMINE [Concomitant]
     Active Substance: METHOXYPHENAMINE
     Indication: Cough
     Dosage: COMPOUND METHOXYPHENAMINE CAPSULES
     Route: 048
     Dates: start: 20220528, end: 20220606
  14. ROSUVASTATIN CALCIUM [Concomitant]
     Active Substance: ROSUVASTATIN CALCIUM
     Indication: Lipids decreased
     Dosage: UNK
     Route: 048
     Dates: start: 20220604, end: 20220604

REACTIONS (1)
  - Overdose [Unknown]
